FAERS Safety Report 8089631-8 (Version None)
Quarter: 2012Q1

REPORT INFORMATION
  Report Type: 
  Country: None (occurrence: None)
  Receive Date: 20120128
  Receipt Date: 20110711
  Transmission Date: 20120608
  Serious: No
  Sender: FDA-Public Use
  Company Number: US-ABBOTT-11P-163-0837872-00

PATIENT
  Age: 48 Year
  Sex: Male

DRUGS (6)
  1. LOTREL [Concomitant]
     Indication: BLOOD PRESSURE INCREASED
     Dosage: 5/10
     Route: 048
  2. ATENOLOL [Concomitant]
     Indication: BLOOD PRESSURE INCREASED
     Dosage: DAILY
     Route: 048
  3. ASPIRIN [Concomitant]
     Indication: PRODUCT USED FOR UNKNOWN INDICATION
     Dosage: DAILY
     Route: 048
  4. TESTOSTERONE SUPPLEMENTS [Concomitant]
     Indication: PRODUCT USED FOR UNKNOWN INDICATION
  5. HUMIRA [Suspect]
     Indication: PSORIATIC ARTHROPATHY
     Dates: start: 20070101, end: 20100901
  6. TRAZODONE HCL [Concomitant]
     Indication: INSOMNIA

REACTIONS (5)
  - GASTROOESOPHAGEAL REFLUX DISEASE [None]
  - HEPATITIS B [None]
  - ARTHRALGIA [None]
  - PSORIASIS [None]
  - PSORIATIC ARTHROPATHY [None]
